FAERS Safety Report 7931717-X (Version None)
Quarter: 2011Q4

REPORT INFORMATION
  Report Type: 
  Country: None (occurrence: None)
  Receive Date: 20111121
  Receipt Date: 20111115
  Transmission Date: 20120403
  Serious: Yes (Other)
  Sender: FDA-Public Use
  Company Number: PHHY2011DE79318

PATIENT
  Age: 58 Year
  Sex: Male

DRUGS (1)
  1. GLEEVEC [Suspect]

REACTIONS (1)
  - ANKLE FRACTURE [None]
